FAERS Safety Report 5405152-2 (Version None)
Quarter: 2007Q3

REPORT INFORMATION
  Report Type: 
  Country: None (occurrence: None)
  Receive Date: 20070803
  Receipt Date: 20070719
  Transmission Date: 20080115
  Serious: Yes (Death)
  Sender: FDA-Public Use
  Company Number: MX-ELI_LILLY_AND_COMPANY-MX200706003670

PATIENT
  Age: 48 Year
  Sex: Female

DRUGS (13)
  1. XIGRIS [Suspect]
     Indication: SHOCK
     Dosage: UNK, OTHER
     Route: 042
     Dates: start: 20070606, end: 20070601
  2. XIGRIS [Suspect]
     Dosage: UNK, UNKNOWN
     Route: 042
     Dates: start: 20070607, end: 20070608
  3. XIGRIS [Suspect]
     Dosage: UNK, UNKNOWN
     Route: 042
     Dates: start: 20070609, end: 20070601
  4. XIGRIS [Suspect]
     Dosage: UNK, UNKNOWN
     Route: 042
     Dates: start: 20070611
  5. XIGRIS [Suspect]
     Dosage: UNK, UNKNOWN
     Route: 042
     Dates: end: 20070613
  6. MEROPENEM [Concomitant]
     Dosage: 1 G, EVERY 8 HRS
     Route: 065
  7. OMEPRAZOLE [Concomitant]
     Dosage: 40 MG, DAILY (1/D)
     Route: 065
  8. METRONIDAZOLE [Concomitant]
     Dosage: 500 MG, EVERY 8 HRS
     Route: 065
  9. AMINOPHYLLINE [Concomitant]
     Dosage: 75 MG, EVERY 4 HRS
     Route: 065
  10. HYDROCORTISONE [Concomitant]
     Dosage: 100 MG, EVERY 8 HRS
     Route: 065
  11. FUROSEMIDE [Concomitant]
     Dosage: 60 MG, EVERY 6 HRS
     Route: 065
  12. ENOXAPARIN SODIUM [Concomitant]
     Indication: THROMBOSIS PROPHYLAXIS
     Dosage: 60 MG, UNKNOWN
     Route: 065
  13. VITAMIN K [Concomitant]
     Dosage: 20 MG, DAILY (1/D)
     Route: 065

REACTIONS (4)
  - ABDOMINAL SEPSIS [None]
  - EPISTAXIS [None]
  - GASTROINTESTINAL HAEMORRHAGE [None]
  - MULTI-ORGAN FAILURE [None]
